FAERS Safety Report 24318704 (Version 1)
Quarter: 2024Q3

REPORT INFORMATION
  Report Type: Spontaneous
  Country: US (occurrence: None)
  Receive Date: 20240913
  Receipt Date: 20240913
  Transmission Date: 20241016
  Serious: No
  Sender: Public
  Company Number: None

PATIENT
  Age: 5 Month
  Sex: Male
  Weight: 5.445 kg

DRUGS (2)
  1. BEYFORTUS [Suspect]
     Active Substance: NIRSEVIMAB-ALIP
     Dosage: 100 MG/ML ONE INTRAMUSCULAR
     Route: 030
     Dates: start: 20240820, end: 20240820
  2. BEYFORTUS [Concomitant]
     Active Substance: NIRSEVIMAB-ALIP
     Dates: start: 20240820, end: 20240820

REACTIONS (1)
  - Inappropriate schedule of product administration [None]

NARRATIVE: CASE EVENT DATE: 20240820
